FAERS Safety Report 23371670 (Version 1)
Quarter: 2024Q1

REPORT INFORMATION
  Report Type: Spontaneous
  Country: US (occurrence: US)
  Receive Date: 20240105
  Receipt Date: 20240105
  Transmission Date: 20240409
  Serious: No
  Sender: FDA-Public Use
  Company Number: US-AQUESTIVE THERAPEUTICS, INC-2023AQU00046

PATIENT

DRUGS (1)
  1. EXSERVAN [Suspect]
     Active Substance: RILUZOLE
     Dosage: UNK

REACTIONS (1)
  - Abdominal discomfort [Unknown]
